FAERS Safety Report 7158378-4 (Version None)
Quarter: 2010Q4

REPORT INFORMATION
  Report Type: 
  Country: None (occurrence: None)
  Receive Date: 20101129
  Receipt Date: 20101112
  Transmission Date: 20110411
  Serious: Yes (Other)
  Sender: FDA-Public Use
  Company Number: 021318

PATIENT
  Sex: Male

DRUGS (1)
  1. CIMZIA [Suspect]
     Dosage: SUBCUTANEOUS
     Route: 058
     Dates: start: 20080701

REACTIONS (4)
  - NO THERAPEUTIC RESPONSE [None]
  - SKIN CANCER [None]
  - SKIN LESION [None]
  - TOOTH ABSCESS [None]
